FAERS Safety Report 18714623 (Version 1)
Quarter: 2021Q1

REPORT INFORMATION
  Report Type: Spontaneous
  Country: US (occurrence: US)
  Receive Date: 20210107
  Receipt Date: 20210107
  Transmission Date: 20210419
  Serious: No
  Sender: FDA-Public Use
  Company Number: US-OSMOTICA_PHARMACEUTICAL_US_LLC-POI0573202000241

PATIENT
  Age: 75 Year
  Sex: Female

DRUGS (2)
  1. NIFEDIPINE EXTENDED?RELEASE TABLETS [Suspect]
     Active Substance: NIFEDIPINE
     Indication: THERAPEUTIC PRODUCT EFFECT DECREASED
     Route: 048
     Dates: start: 2015
  2. BENICAR [Concomitant]
     Active Substance: OLMESARTAN MEDOXOMIL
     Indication: PRODUCT USED FOR UNKNOWN INDICATION

REACTIONS (1)
  - Hypertension [Not Recovered/Not Resolved]

NARRATIVE: CASE EVENT DATE: 202003
